FAERS Safety Report 17632628 (Version 1)
Quarter: 2020Q2

REPORT INFORMATION
  Report Type: Spontaneous
  Country: IR (occurrence: IR)
  Receive Date: 20200406
  Receipt Date: 20200406
  Transmission Date: 20200713
  Serious: Yes (Other)
  Sender: FDA-Public Use
  Company Number: NVSC2020IR082398

PATIENT
  Age: 8 Year
  Sex: Female
  Weight: 24 kg

DRUGS (1)
  1. TRIAMCINOLONE [Suspect]
     Active Substance: TRIAMCINOLONE
     Indication: ALOPECIA AREATA
     Dosage: 20 MG, QD, MONTHLY
     Route: 026

REACTIONS (4)
  - Incorrect route of product administration [Unknown]
  - Product administration error [Unknown]
  - Telangiectasia [Unknown]
  - Cutaneous calcification [Unknown]
